FAERS Safety Report 5871293-9 (Version None)
Quarter: 2008Q3

REPORT INFORMATION
  Report Type: 
  Country: None (occurrence: None)
  Receive Date: 20080905
  Receipt Date: 20080826
  Transmission Date: 20090109
  Serious: Yes (Hospitalization)
  Sender: FDA-Public Use
  Company Number: DEWYE355201FEB06

PATIENT
  Age: 23 Year
  Sex: Female
  Weight: 102 kg

DRUGS (4)
  1. TREVILOR [Suspect]
     Indication: DEPRESSIVE SYMPTOM
     Route: 048
     Dates: start: 20051101
  2. BETAFERON [Concomitant]
     Dosage: UNKNOWN
  3. IBUPROFEN [Concomitant]
     Dosage: UNKNOWN
  4. UNSPECIFIED CONTRACEPTIVE [Concomitant]

REACTIONS (5)
  - CAESAREAN SECTION [None]
  - CEPHALO-PELVIC DISPROPORTION [None]
  - DRUG EXPOSURE DURING PREGNANCY [None]
  - GESTATIONAL DIABETES [None]
  - UNINTENDED PREGNANCY [None]
